FAERS Safety Report 9730317 (Version 2)
Quarter: 2013Q4

REPORT INFORMATION
  Report Type: Spontaneous
  Country: TR (occurrence: TR)
  Receive Date: 20131202
  Receipt Date: 20131217
  Transmission Date: 20140711
  Serious: Yes (Hospitalization, Other)
  Sender: FDA-Public Use
  Company Number: TR-PFIZER INC-2013338708

PATIENT
  Age: 24 Year
  Sex: Male

DRUGS (1)
  1. LYRICA [Suspect]
     Dosage: 3 G, SINGLE

REACTIONS (5)
  - Overdose [Unknown]
  - Toxicity to various agents [Unknown]
  - Suicide attempt [Unknown]
  - Somnolence [Unknown]
  - Dizziness [Unknown]
